FAERS Safety Report 5950447-7 (Version None)
Quarter: 2008Q4

REPORT INFORMATION
  Report Type: 
  Country: None (occurrence: None)
  Receive Date: 20081112
  Receipt Date: 20081105
  Transmission Date: 20090506
  Serious: Yes (Other)
  Sender: FDA-Public Use
  Company Number: PHHO2008JP12350

PATIENT
  Age: 57 Year
  Sex: Female

DRUGS (4)
  1. FAMVIR [Suspect]
     Indication: HERPES ZOSTER
     Dosage: 500 MG PER DAY
     Route: 048
     Dates: start: 20080926, end: 20080926
  2. NAIXAN [Suspect]
     Indication: PAIN
     Dosage: 200 MG/DAY AFTER DINNER
     Route: 048
     Dates: start: 20080926, end: 20080926
  3. MUCOSTA [Suspect]
     Indication: GASTRIC MUCOSAL LESION
     Dosage: 100 MG/DAY AFTER DINNER
     Route: 048
     Dates: start: 20080926, end: 20080926
  4. CASAL [Concomitant]
     Dosage: UNK
     Dates: start: 20080926

REACTIONS (2)
  - DYSPNOEA [None]
  - EYELID OEDEMA [None]
